FAERS Safety Report 6636765-8 (Version None)
Quarter: 2010Q1

REPORT INFORMATION
  Report Type: 
  Country: None (occurrence: None)
  Receive Date: 20100316
  Receipt Date: 20100309
  Transmission Date: 20100710
  Serious: Yes (Hospitalization)
  Sender: FDA-Public Use
  Company Number: GB-AMGEN-KDC396150

PATIENT
  Sex: Male

DRUGS (8)
  1. VECTIBIX [Suspect]
     Indication: GASTROOESOPHAGEAL CANCER
     Dates: start: 20100128
  2. EPIRUBICIN [Suspect]
     Dates: start: 20100128
  3. OXALIPLATIN [Suspect]
     Dates: start: 20100128
  4. CAPECITABINE [Suspect]
     Dates: start: 20100128
  5. LANSOPRAZOLE [Concomitant]
  6. CLINDAMYCIN [Concomitant]
     Route: 061
  7. BETAMETHASONE VALERATE [Concomitant]
  8. MOVICOL [Concomitant]

REACTIONS (1)
  - PERIPHERAL ISCHAEMIA [None]
